FAERS Safety Report 6252888-X (Version None)
Quarter: 2009Q2

REPORT INFORMATION
  Report Type: 
  Country: None (occurrence: None)
  Receive Date: 20090629
  Receipt Date: 20090618
  Transmission Date: 20091009
  Serious: Yes (Hospitalization)
  Sender: FDA-Public Use
  Company Number: SPV1-2009-01284

PATIENT
  Age: 4 Year
  Sex: Female
  Weight: 15 kg

DRUGS (4)
  1. DAYTRANA [Suspect]
     Dosage: 10 MG, 1X/DAY:QD, TRANSDERMAL; 10 MG, 1X/DAY:QD, TRANSDERMAL
     Route: 062
     Dates: start: 20080101, end: 20090613
  2. DAYTRANA [Suspect]
     Dosage: 10 MG, 1X/DAY:QD, TRANSDERMAL; 10 MG, 1X/DAY:QD, TRANSDERMAL
     Route: 062
     Dates: start: 20090618
  3. DEPAKOTE [Concomitant]
  4. CLONIDINE [Concomitant]

REACTIONS (6)
  - DEHYDRATION [None]
  - DIARRHOEA [None]
  - FAILURE TO THRIVE [None]
  - OFF LABEL USE [None]
  - PRODUCT QUALITY ISSUE [None]
  - VOMITING [None]
